FAERS Safety Report 4580357-1 (Version None)
Quarter: 2005Q1

REPORT INFORMATION
  Report Type: 
  Country: None (occurrence: None)
  Receive Date: 20050214
  Receipt Date: 20040106
  Transmission Date: 20050727
  Serious: No
  Sender: FDA-Public Use
  Company Number: US-GLAXOSMITHKLINE-A0491721A

PATIENT
  Age: 36 Year
  Sex: Male
  Weight: 72.7 kg

DRUGS (3)
  1. LAMICTAL [Suspect]
     Indication: BIPOLAR DISORDER
     Dosage: 200MG PER DAY
     Route: 048
     Dates: start: 20030201, end: 20040107
  2. TRAZODONE [Concomitant]
     Dates: start: 20030201
  3. EFFEXOR [Concomitant]
     Dates: start: 20030201

REACTIONS (3)
  - DISTURBANCE IN ATTENTION [None]
  - ERYTHEMA [None]
  - PRURITUS [None]
